FAERS Safety Report 7226790-0 (Version None)
Quarter: 2011Q1

REPORT INFORMATION
  Report Type: 
  Country: None (occurrence: None)
  Receive Date: 20110114
  Receipt Date: 20100103
  Transmission Date: 20110831
  Serious: Yes (Death)
  Sender: FDA-Public Use
  Company Number: PHBS2007US21922

PATIENT
  Sex: Male

DRUGS (1)
  1. EXJADE [Suspect]
     Dosage: 500 MG, UNK

REACTIONS (4)
  - MALAISE [None]
  - DEATH [None]
  - DRUG INEFFECTIVE [None]
  - DIZZINESS [None]
